FAERS Safety Report 10279846 (Version 1)
Quarter: 2014Q3

REPORT INFORMATION
  Report Type: Spontaneous
  Country: GE (occurrence: GE)
  Receive Date: 20140707
  Receipt Date: 20140707
  Transmission Date: 20150326
  Serious: Yes (Hospitalization)
  Sender: FDA-Public Use
  Company Number: GE-ROCHE-1428710

PATIENT
  Sex: Female

DRUGS (1)
  1. XENICAL [Suspect]
     Active Substance: ORLISTAT
     Indication: OBESITY
     Dosage: 2 CAPSULE
     Route: 048

REACTIONS (2)
  - Pancreatitis haemorrhagic [Recovered/Resolved]
  - Overdose [Unknown]
